FAERS Safety Report 24327741 (Version 2)
Quarter: 2024Q3

REPORT INFORMATION
  Report Type: Spontaneous
  Country: US (occurrence: US)
  Receive Date: 20240917
  Receipt Date: 20240923
  Transmission Date: 20241016
  Serious: Yes (Other)
  Sender: UCB
  Company Number: US-UCBSA-2024046220

PATIENT
  Sex: Male
  Weight: 86.18 kg

DRUGS (1)
  1. BIMEKIZUMAB [Suspect]
     Active Substance: BIMEKIZUMAB
     Indication: Psoriasis
     Dosage: 320 MILLIGRAM
     Route: 058

REACTIONS (3)
  - Psoriasis [Unknown]
  - Oral candidiasis [Unknown]
  - Hypersensitivity [Unknown]
